FAERS Safety Report 5152871-1 (Version None)
Quarter: 2006Q4

REPORT INFORMATION
  Report Type: 
  Country: None (occurrence: None)
  Receive Date: 20061117
  Receipt Date: 20061107
  Transmission Date: 20070319
  Serious: Yes (Life-Threatening)
  Sender: FDA-Public Use
  Company Number: PHBS2006AR17341

PATIENT
  Age: 27 Year
  Sex: Female

DRUGS (1)
  1. CLOZAPINE [Suspect]
     Dosage: 4000 MG, ONCE/SINGLE
     Route: 048
     Dates: start: 20061105, end: 20061105

REACTIONS (11)
  - ASPIRATION [None]
  - COMA [None]
  - DEPRESSED LEVEL OF CONSCIOUSNESS [None]
  - GASTRIC LAVAGE [None]
  - INTENTIONAL OVERDOSE [None]
  - LIFE SUPPORT [None]
  - MICTURITION DISORDER [None]
  - OEDEMA [None]
  - PNEUMONIA ASPIRATION [None]
  - PYREXIA [None]
  - SUICIDE ATTEMPT [None]
